FAERS Safety Report 8131735-5 (Version None)
Quarter: 2012Q1

REPORT INFORMATION
  Report Type: 
  Country: None (occurrence: None)
  Receive Date: 20120213
  Receipt Date: 20120201
  Transmission Date: 20120608
  Serious: Yes (Other)
  Sender: FDA-Public Use
  Company Number: US-JNJFOC-20120202754

PATIENT
  Age: 90 Year
  Sex: Female
  Weight: 68.04 kg

DRUGS (12)
  1. ACETAMINOPHEN [Suspect]
     Indication: SCIATICA
     Route: 048
     Dates: start: 20120201, end: 20120201
  2. ACETAMINOPHEN [Suspect]
     Route: 048
  3. ACETAMINOPHEN [Suspect]
     Route: 048
  4. LOSARTAN POTASSIUM AND HYDROCHLOROTHIAZIDE [Concomitant]
     Indication: BLOOD PRESSURE
     Dosage: 100/12.5MG AT NIGHT MORE THAN 5 YEARS
     Route: 065
  5. ASCORBIC ACID [Concomitant]
     Indication: VITAMIN SUPPLEMENTATION
     Dosage: MORE THAN 5 YEARS
     Route: 065
  6. ACETAMINOPHEN [Suspect]
     Indication: SCIATICA
     Dosage: 1-2 CAPLETS
     Route: 048
     Dates: end: 20120201
  7. STOOL SOFTENER [Concomitant]
     Indication: PRODUCT USED FOR UNKNOWN INDICATION
     Dosage: MORE THAN 5 YEARS
     Route: 065
  8. VITAMIN D [Concomitant]
     Indication: VITAMIN SUPPLEMENTATION
     Dosage: MORE THAN 5 YEARS
     Route: 065
  9. ASPIRIN [Suspect]
     Indication: CEREBROVASCULAR ACCIDENT PROPHYLAXIS
     Route: 065
  10. ICAPS [Concomitant]
     Indication: VITAMIN SUPPLEMENTATION
     Route: 065
  11. DICYCLOMINE [Concomitant]
     Indication: IRRITABLE BOWEL SYNDROME
     Route: 065
     Dates: start: 20080101
  12. PERDIEM [Concomitant]
     Indication: LAXATIVE SUPPORTIVE CARE
     Route: 065

REACTIONS (4)
  - PSYCHOMOTOR HYPERACTIVITY [None]
  - HYPERTENSION [None]
  - PRURITUS [None]
  - DRUG ADMINISTRATION ERROR [None]
